FAERS Safety Report 5091273-3 (Version None)
Quarter: 2006Q3

REPORT INFORMATION
  Report Type: 
  Country: None (occurrence: None)
  Receive Date: 20060829
  Receipt Date: 20060817
  Transmission Date: 20061208
  Serious: Yes (Other)
  Sender: FDA-Public Use
  Company Number: US-AVENTIS-200616930US

PATIENT
  Age: 37 Year
  Sex: Female

DRUGS (3)
  1. LOVENOX [Suspect]
     Indication: DEEP VEIN THROMBOSIS
     Dosage: DOSE: 10-20MG
  2. LOVENOX [Suspect]
     Indication: HYPERCOAGULATION
     Dosage: DOSE: 10-20MG
  3. ARGATROBAN [Concomitant]
     Dosage: DOSE: UNK

REACTIONS (3)
  - ABORTION [None]
  - DRUG EXPOSURE DURING PREGNANCY [None]
  - THROMBOTIC THROMBOCYTOPENIC PURPURA [None]
